FAERS Safety Report 4882691-4 (Version None)
Quarter: 2006Q1

REPORT INFORMATION
  Report Type: 
  Country: None (occurrence: None)
  Receive Date: 20060113
  Receipt Date: 20060104
  Transmission Date: 20060701
  Serious: Yes (Death)
  Sender: FDA-Public Use
  Company Number: 230240M05USA

PATIENT
  Age: 60 Year
  Sex: Female
  Weight: 55 kg

DRUGS (6)
  1. REBIF (INTERFERON BETA) [Suspect]
     Indication: MULTIPLE SCLEROSIS
     Dates: end: 20050101
  2. AMITRIPTYLINE HCL [Suspect]
  3. CARISOPRODOL [Suspect]
  4. DIAZEPAM [Suspect]
  5. MEPROBAMATE [Suspect]
  6. NORDIAZEPAM (NORDAZEPAM) [Suspect]

REACTIONS (3)
  - ACCIDENTAL DEATH [None]
  - DRUG TOXICITY [None]
  - MULTIPLE DRUG OVERDOSE [None]
